FAERS Safety Report 5486403-5 (Version None)
Quarter: 2007Q4

REPORT INFORMATION
  Report Type: 
  Country: None (occurrence: None)
  Receive Date: 20071012
  Receipt Date: 20070927
  Transmission Date: 20080405
  Serious: No
  Sender: FDA-Public Use
  Company Number: US021352

PATIENT
  Age: 16 Year
  Sex: Male

DRUGS (5)
  1. FENTORA [Suspect]
     Indication: BONE PAIN
     Dosage: 100 UG Q1HR BUCCAL
     Route: 002
     Dates: start: 20070801, end: 20070901
  2. FENTORA [Suspect]
     Indication: BONE PAIN
     Dosage: 200 UG BUCCAL
     Route: 002
     Dates: start: 20070901
  3. FENTANYL [Concomitant]
  4. CELEBREX [Concomitant]
  5. FOSAMAX [Concomitant]

REACTIONS (2)
  - DRUG EFFECT DECREASED [None]
  - MEDICATION ERROR [None]
